FAERS Safety Report 22222947 (Version 1)
Quarter: 2023Q2

REPORT INFORMATION
  Report Type: Spontaneous
  Country: US (occurrence: None)
  Receive Date: 20230414
  Receipt Date: 20230414
  Transmission Date: 20230721
  Serious: No
  Sender: FDA-Public Use
  Company Number: None

PATIENT
  Age: 75 Year
  Sex: Male

DRUGS (1)
  1. AMPHOTERICIN B [Suspect]
     Active Substance: AMPHOTERICIN B
     Route: 042

REACTIONS (5)
  - Tremor [None]
  - Chills [None]
  - Tachypnoea [None]
  - Oxygen saturation decreased [None]
  - Blood creatinine increased [None]

NARRATIVE: CASE EVENT DATE: 20210214
